FAERS Safety Report 17931481 (Version 1)
Quarter: 2020Q2

REPORT INFORMATION
  Report Type: Report from Study
  Country: AE (occurrence: AE)
  Receive Date: 20200623
  Receipt Date: 20200623
  Transmission Date: 20200714
  Serious: Yes (Hospitalization)
  Sender: FDA-Public Use
  Company Number: NVSC2020AE175615

PATIENT
  Age: 58 Year
  Sex: Male

DRUGS (1)
  1. GALVUS MET [Suspect]
     Active Substance: METFORMIN HYDROCHLORIDE\VILDAGLIPTIN
     Indication: TYPE 2 DIABETES MELLITUS
     Dosage: UNK UNK, BID
     Route: 048
     Dates: start: 20180924

REACTIONS (7)
  - Syncope [Recovered/Resolved]
  - Vomiting [Recovered/Resolved]
  - Coronavirus test positive [Recovered/Resolved]
  - Fatigue [Recovered/Resolved]
  - Eating disorder [Recovered/Resolved]
  - Pneumonia [Recovered/Resolved]
  - Dizziness [Recovered/Resolved]

NARRATIVE: CASE EVENT DATE: 20200514
